FAERS Safety Report 13672309 (Version 1)
Quarter: 2017Q2

REPORT INFORMATION
  Report Type: Spontaneous
  Country: US (occurrence: US)
  Receive Date: 20170620
  Receipt Date: 20170620
  Transmission Date: 20170830
  Serious: Yes (Other)
  Sender: FDA-Public Use
  Company Number: None

PATIENT
  Age: 51 Year
  Sex: Male
  Weight: 80.1 kg

DRUGS (1)
  1. AZITHROMYCIN ANHYDROUS. [Suspect]
     Active Substance: AZITHROMYCIN ANHYDROUS
     Indication: INFECTION
     Dosage: OTHER FREQUENCY:2 TAB DAY 1;?
     Route: 048

REACTIONS (4)
  - Hypoaesthesia [None]
  - Muscle twitching [None]
  - Lethargy [None]
  - Eye disorder [None]

NARRATIVE: CASE EVENT DATE: 20170620
